FAERS Safety Report 14976341 (Version 1)
Quarter: 2018Q2

REPORT INFORMATION
  Report Type: Spontaneous
  Country: US (occurrence: US)
  Receive Date: 20180605
  Receipt Date: 20180605
  Transmission Date: 20180711
  Serious: Yes (Hospitalization)
  Sender: FDA-Public Use
  Company Number: US-ROCHE-1961611

PATIENT
  Sex: Female
  Weight: 113.5 kg

DRUGS (2)
  1. ACTEMRA [Suspect]
     Active Substance: TOCILIZUMAB
     Indication: RHEUMATOID ARTHRITIS
     Route: 065
     Dates: start: 20170703
  2. SAVELLA [Concomitant]
     Active Substance: MILNACIPRAN HYDROCHLORIDE
     Dosage: STEROID
     Route: 048
     Dates: start: 20170705

REACTIONS (4)
  - Erythema [Unknown]
  - Pain in extremity [Unknown]
  - Hypersensitivity [Recovered/Resolved]
  - Sensory disturbance [Unknown]
